FAERS Safety Report 22266437 (Version 4)
Quarter: 2024Q1

REPORT INFORMATION
  Report Type: Spontaneous
  Country: DE (occurrence: DE)
  Receive Date: 20230428
  Receipt Date: 20240319
  Transmission Date: 20240409
  Serious: Yes (Hospitalization)
  Sender: FDA-Public Use
  Company Number: DE-TEVA-2022-DE-2043273

PATIENT
  Age: 28 Year
  Sex: Female

DRUGS (2)
  1. COPAXONE [Suspect]
     Active Substance: GLATIRAMER ACETATE
     Indication: Product used for unknown indication
     Dosage: TIME INTERVAL: 0.333 WEEKS
     Route: 065
     Dates: start: 2016, end: 20210810
  2. COPAXONE [Suspect]
     Active Substance: GLATIRAMER ACETATE
     Dosage: TIME INTERVAL: 0.333 WEEKS
     Route: 065
     Dates: start: 20220601

REACTIONS (5)
  - Cervical incompetence [Unknown]
  - Maternal exposure during pregnancy [Unknown]
  - Live birth [Unknown]
  - COVID-19 [Unknown]
  - Premature delivery [Unknown]

NARRATIVE: CASE EVENT DATE: 20210627
